FAERS Safety Report 24538115 (Version 1)
Quarter: 2024Q4

REPORT INFORMATION
  Report Type: Spontaneous
  Country: US (occurrence: US)
  Receive Date: 20241023
  Receipt Date: 20241023
  Transmission Date: 20250114
  Serious: No
  Sender: GLENMARK
  Company Number: US-GLENMARK PHARMACEUTICALS-2024GMK089452

PATIENT

DRUGS (3)
  1. LIDOCAINE [Suspect]
     Active Substance: LIDOCAINE
     Indication: Back pain
     Dosage: UNK UNK, BID, TWICE A DAY
     Route: 065
  2. LIDOCAINE [Suspect]
     Active Substance: LIDOCAINE
     Indication: Neuropathy peripheral
  3. LIDOCAINE [Suspect]
     Active Substance: LIDOCAINE
     Indication: Injection site pain

REACTIONS (1)
  - Drug effective for unapproved indication [Unknown]
